FAERS Safety Report 9885710 (Version 6)
Quarter: 2014Q2

REPORT INFORMATION
  Report Type: Spontaneous
  Country: US (occurrence: US)
  Receive Date: 20140210
  Receipt Date: 20140430
  Transmission Date: 20141212
  Serious: No
  Sender: FDA-Public Use
  Company Number: US-PFIZER INC-2014028325

PATIENT
  Age: 54 Year
  Sex: Male

DRUGS (2)
  1. INLYTA [Suspect]
     Indication: RENAL CANCER
     Dosage: 3 MG (1 MG 3 TABS), 2X/DAY
     Route: 048
     Dates: start: 20140129
  2. INLYTA [Suspect]
     Dosage: 3 MG (1 MG 3 TABS), 2X/DAY
     Route: 048
     Dates: start: 20140129

REACTIONS (13)
  - Productive cough [Unknown]
  - Haemoptysis [Unknown]
  - Dizziness [Unknown]
  - Diarrhoea [Recovered/Resolved]
  - Blood pressure fluctuation [Not Recovered/Not Resolved]
  - Fatigue [Recovered/Resolved]
  - Blood pressure increased [Not Recovered/Not Resolved]
  - Cough [Unknown]
  - Haemoglobin increased [Unknown]
  - Thyroid disorder [Unknown]
  - Blood pressure diastolic increased [Unknown]
  - Disease progression [Unknown]
  - Renal cancer [Unknown]
